FAERS Safety Report 6188421-0 (Version None)
Quarter: 2009Q2

REPORT INFORMATION
  Report Type: 
  Country: None (occurrence: None)
  Receive Date: 20090513
  Receipt Date: 20090508
  Transmission Date: 20091009
  Serious: Yes (Hospitalization, Other)
  Sender: FDA-Public Use
  Company Number: US-BAYER-200837570NA

PATIENT
  Age: 24 Year
  Sex: Female
  Weight: 68 kg

DRUGS (1)
  1. MIRENA [Suspect]
     Indication: CONTRACEPTION
     Dosage: DAILY CONTINUOUS
     Route: 015
     Dates: start: 20081024, end: 20081105

REACTIONS (2)
  - ABDOMINAL PAIN [None]
  - UTERINE RUPTURE [None]
